FAERS Safety Report 5283578-8 (Version None)
Quarter: 2007Q1

REPORT INFORMATION
  Report Type: 
  Country: None (occurrence: None)
  Receive Date: 20061226
  Receipt Date: 20061108
  Transmission Date: 20070707
  Serious: No
  Sender: FDA-Public Use
  Company Number: 2006PV024856

PATIENT
  Age: 68 Year
  Sex: Female
  Weight: 99.7913 kg

DRUGS (4)
  1. SYMLIN [Suspect]
     Indication: DIABETES MELLITUS NON-INSULIN-DEPENDENT
     Dosage: SEE IMAGE
     Route: 058
     Dates: start: 20050401, end: 20050401
  2. SYMLIN [Suspect]
     Indication: DIABETES MELLITUS NON-INSULIN-DEPENDENT
     Dosage: SEE IMAGE
     Route: 058
     Dates: start: 20050401
  3. NOVOLOG [Concomitant]
  4. LANTUS [Concomitant]

REACTIONS (2)
  - ALOPECIA [None]
  - CONDITION AGGRAVATED [None]
